FAERS Safety Report 5607873-5 (Version None)
Quarter: 2008Q1

REPORT INFORMATION
  Report Type: 
  Country: None (occurrence: None)
  Receive Date: 20080130
  Receipt Date: 20080123
  Transmission Date: 20080703
  Serious: Yes (Other)
  Sender: FDA-Public Use
  Company Number: CN-BAYER-200717856GPV

PATIENT
  Age: 60 Year
  Sex: Male
  Weight: 64 kg

DRUGS (5)
  1. NEXAVAR [Suspect]
     Indication: METASTATIC RENAL CELL CARCINOMA
     Dosage: TOTAL DAILY DOSE: 800 MG
     Route: 048
     Dates: start: 20070405
  2. NEXAVAR [Suspect]
     Dosage: TOTAL DAILY DOSE: 400 MG
     Route: 048
     Dates: start: 20070501
  3. BIOLOGIC TREATMENT [Concomitant]
     Indication: METASTATIC RENAL CELL CARCINOMA
  4. LENTINAN [Concomitant]
     Route: 042
     Dates: start: 20070822, end: 20070831
  5. ANTINFAN [Concomitant]
     Indication: PYREXIA
     Route: 065
     Dates: start: 20070822, end: 20070831

REACTIONS (8)
  - ANAEMIA [None]
  - ANOREXIA [None]
  - ASTHENIA [None]
  - BLISTER [None]
  - DYSPHONIA [None]
  - MOUTH ULCERATION [None]
  - PALMAR-PLANTAR ERYTHRODYSAESTHESIA SYNDROME [None]
  - PLATELET COUNT INCREASED [None]
